FAERS Safety Report 4273711-9 (Version None)
Quarter: 2004Q1

REPORT INFORMATION
  Report Type: 
  Country: None (occurrence: None)
  Receive Date: 20040119
  Receipt Date: 20040105
  Transmission Date: 20041129
  Serious: Yes (Hospitalization)
  Sender: FDA-Public Use
  Company Number: ES-ROCHE-355640

PATIENT
  Age: 60 Year
  Sex: Male
  Weight: 56 kg

DRUGS (8)
  1. CAPECITABINE [Suspect]
     Indication: COLON CANCER
     Route: 048
     Dates: start: 20030707, end: 20031222
  2. OXALIPLATIN [Suspect]
     Indication: COLON CANCER
     Route: 042
     Dates: start: 20030707, end: 20031209
  3. OMEPRAZOLE [Concomitant]
     Route: 048
     Dates: start: 20030707
  4. ATROVENT [Concomitant]
     Dates: start: 20030707
  5. NAPROSYN [Concomitant]
     Dates: start: 20030707
  6. MOVICOL [Concomitant]
     Dosage: UNIT: PACKET.
     Route: 048
     Dates: start: 20030707
  7. SEREVENT [Concomitant]
     Dates: start: 20030707
  8. INSULIN [Concomitant]
     Route: 058
     Dates: start: 19920615

REACTIONS (2)
  - ABSCESS JAW [None]
  - NEUROTOXICITY [None]
